FAERS Safety Report 16122016 (Version 1)
Quarter: 2019Q1

REPORT INFORMATION
  Report Type: Spontaneous
  Country: US (occurrence: US)
  Receive Date: 20190222
  Receipt Date: 20190222
  Transmission Date: 20190418
  Serious: No
  Sender: FDA-Public Use
  Company Number: None

PATIENT
  Age: 84 Year
  Sex: Male

DRUGS (2)
  1. ABIRATERONE. [Concomitant]
     Active Substance: ABIRATERONE ACETATE
  2. PREDNISONE 5MG TAB [Suspect]
     Active Substance: PREDNISONE
     Dates: start: 201902

REACTIONS (2)
  - Pain [None]
  - Abdominal discomfort [None]

NARRATIVE: CASE EVENT DATE: 20190221
